FAERS Safety Report 16061408 (Version 1)
Quarter: 2019Q1

REPORT INFORMATION
  Report Type: Spontaneous
  Country: US (occurrence: US)
  Receive Date: 20190312
  Receipt Date: 20190312
  Transmission Date: 20190418
  Serious: No
  Sender: FDA-Public Use
  Company Number: US-ROCHE-2248621

PATIENT
  Age: 67 Year
  Sex: Male

DRUGS (2)
  1. AVASTIN [Suspect]
     Active Substance: BEVACIZUMAB
     Indication: DIABETIC RETINAL OEDEMA
     Route: 065
     Dates: start: 20181218
  2. AVASTIN [Suspect]
     Active Substance: BEVACIZUMAB
     Indication: DIABETIC RETINOPATHY
     Dosage: FOR THE RIGHT EYE
     Route: 050
     Dates: start: 201711

REACTIONS (3)
  - Intentional product use issue [Unknown]
  - Foreign body in eye [Unknown]
  - Off label use [Unknown]

NARRATIVE: CASE EVENT DATE: 20181210
